FAERS Safety Report 14825619 (Version 1)
Quarter: 2018Q2

REPORT INFORMATION
  Report Type: Spontaneous
  Country: DE (occurrence: DE)
  Receive Date: 20180430
  Receipt Date: 20180430
  Transmission Date: 20180711
  Serious: Yes (Other)
  Sender: FDA-Public Use
  Company Number: DE-TEVA-2018-DE-886591

PATIENT
  Age: 1 Day
  Sex: Male
  Weight: 2.61 kg

DRUGS (4)
  1. L-THYROXIN [Concomitant]
     Active Substance: LEVOTHYROXINE SODIUM
     Indication: AUTOIMMUNE THYROIDITIS
     Dosage: 175 MICROGRAM DAILY; 175 [?G/D ]
     Route: 064
     Dates: start: 20170306, end: 20171217
  2. PROPESS 10 MG VAGINAL RELEASE SYSTEM [Concomitant]
     Indication: LABOUR INDUCTION
     Route: 064
     Dates: start: 20171217, end: 20171217
  3. FEMIBION [Concomitant]
     Active Substance: VITAMINS
     Indication: PROPHYLAXIS OF NEURAL TUBE DEFECT
     Route: 064
     Dates: start: 20170510, end: 20171217
  4. METOPROLOL SUCCINATE. [Suspect]
     Active Substance: METOPROLOL SUCCINATE
     Indication: HYPERTENSION
     Dosage: 95 MILLIGRAM DAILY; 95 [MG/D ]
     Route: 064
     Dates: start: 20170306, end: 20171217

REACTIONS (2)
  - Small for dates baby [Recovering/Resolving]
  - Exposure during pregnancy [Unknown]

NARRATIVE: CASE EVENT DATE: 20171217
